FAERS Safety Report 12365084 (Version 5)
Quarter: 2016Q3

REPORT INFORMATION
  Report Type: Report from Study
  Country: US (occurrence: US)
  Receive Date: 20160513
  Receipt Date: 20160902
  Transmission Date: 20161109
  Serious: Yes (Hospitalization, Other)
  Sender: FDA-Public Use
  Company Number: US-BAYER-2015-142937

PATIENT
  Age: 60 Year
  Sex: Female
  Weight: 54.42 kg

DRUGS (20)
  1. ADEMPAS [Suspect]
     Active Substance: RIOCIGUAT
     Indication: PULMONARY ARTERIAL HYPERTENSION
     Dosage: 1 MG, TID
     Dates: start: 20150327
  2. ADEMPAS [Suspect]
     Active Substance: RIOCIGUAT
     Indication: PULMONARY ARTERIAL HYPERTENSION
     Dosage: 2.5 MG, TID
     Route: 048
  3. ADEMPAS [Suspect]
     Active Substance: RIOCIGUAT
     Indication: PULMONARY ARTERIAL HYPERTENSION
     Dosage: 2 MG, TID
     Route: 048
  4. COUMADIN [Concomitant]
     Active Substance: WARFARIN SODIUM
  5. ADEMPAS [Suspect]
     Active Substance: RIOCIGUAT
     Indication: PULMONARY ARTERIAL HYPERTENSION
     Dosage: 1.5 MG, TID
     Route: 048
  6. ADEMPAS [Suspect]
     Active Substance: RIOCIGUAT
     Indication: PULMONARY ARTERIAL HYPERTENSION
     Dosage: 2.5 MG, TID
     Route: 048
  7. ADEMPAS [Suspect]
     Active Substance: RIOCIGUAT
     Indication: PULMONARY ARTERIAL HYPERTENSION
     Dosage: 2 MG, TID
     Route: 048
  8. ADEMPAS [Suspect]
     Active Substance: RIOCIGUAT
     Indication: PULMONARY ARTERIAL HYPERTENSION
     Dosage: 2.5 MG, TID
     Route: 048
  9. DILTIAZEM. [Concomitant]
     Active Substance: DILTIAZEM
  10. ADEMPAS [Suspect]
     Active Substance: RIOCIGUAT
     Indication: PULMONARY ARTERIAL HYPERTENSION
     Dosage: 2 MG, TID
     Route: 048
  11. OPSUMIT [Concomitant]
     Active Substance: MACITENTAN
  12. ADEMPAS [Suspect]
     Active Substance: RIOCIGUAT
     Indication: PULMONARY ARTERIAL HYPERTENSION
     Dosage: 2 MG, TID
     Route: 048
  13. ADEMPAS [Suspect]
     Active Substance: RIOCIGUAT
     Indication: PULMONARY ARTERIAL HYPERTENSION
     Dosage: UNK
     Dates: start: 20150324
  14. ADEMPAS [Suspect]
     Active Substance: RIOCIGUAT
     Indication: PULMONARY ARTERIAL HYPERTENSION
     Dosage: 2.5 MG, TID
     Route: 048
  15. VENTAVIS [Concomitant]
     Active Substance: ILOPROST
  16. REVATIO [Concomitant]
     Active Substance: SILDENAFIL CITRATE
  17. ADEMPAS [Suspect]
     Active Substance: RIOCIGUAT
     Indication: PULMONARY ARTERIAL HYPERTENSION
     Dosage: 2 MG, TID
     Route: 048
  18. ADEMPAS [Suspect]
     Active Substance: RIOCIGUAT
     Indication: PULMONARY ARTERIAL HYPERTENSION
     Dosage: 1 MG, TID
     Route: 048
  19. ADEMPAS [Suspect]
     Active Substance: RIOCIGUAT
     Indication: PULMONARY ARTERIAL HYPERTENSION
     Dosage: 2 MG, TID
     Route: 048
  20. ENOXAPARIN [Concomitant]
     Active Substance: ENOXAPARIN

REACTIONS (43)
  - Vomiting [Unknown]
  - Fatigue [None]
  - Vertigo [Unknown]
  - Cough [None]
  - Haematochezia [Unknown]
  - Sickle cell anaemia with crisis [None]
  - Blood pressure diastolic decreased [None]
  - Dizziness [Unknown]
  - Gastrointestinal haemorrhage [Unknown]
  - Pneumonia [Unknown]
  - Hospitalisation [Unknown]
  - Asthenia [None]
  - Dyspnoea exertional [Unknown]
  - Fluid retention [Unknown]
  - Dizziness [None]
  - Palpitations [None]
  - Chest pain [Unknown]
  - Sickle cell anaemia with crisis [Unknown]
  - Sickle cell anaemia with crisis [None]
  - Heart rate increased [None]
  - Abdominal discomfort [Unknown]
  - Peripheral swelling [Unknown]
  - Headache [Unknown]
  - Palpitations [Unknown]
  - Heart rate abnormal [Unknown]
  - Mobility decreased [Unknown]
  - Pneumonia [Unknown]
  - Malaise [None]
  - Sickle cell anaemia [None]
  - Chest discomfort [Unknown]
  - Abdominal distension [None]
  - Blood count abnormal [Unknown]
  - Haemoglobin decreased [Unknown]
  - Sickle cell anaemia [Unknown]
  - Dyspepsia [Unknown]
  - Pain [Unknown]
  - Fatigue [Unknown]
  - Nasopharyngitis [Unknown]
  - Ear discomfort [Unknown]
  - Pain [None]
  - Exercise tolerance decreased [Unknown]
  - Decreased appetite [None]
  - Muscle spasms [Unknown]

NARRATIVE: CASE EVENT DATE: 20150629
